FAERS Safety Report 8969511 (Version 1)
Quarter: 2012Q4

REPORT INFORMATION
  Report Type: 
  Country: US (occurrence: US)
  Receive Date: 20121218
  Receipt Date: 20121218
  Transmission Date: 20130627
  Serious: Yes (Other)
  Sender: FDA-Public Use
  Company Number: US-BRISTOL-MYERS SQUIBB COMPANY-16262933

PATIENT
  Age: 48 Year
  Sex: Male
  Weight: 120.18 kg

DRUGS (1)
  1. ABILIFY TABS [Suspect]
     Dosage: 1DF=Abilify tablet into fourths and then take one fourth of a tablet each day

REACTIONS (6)
  - Tardive dyskinesia [Not Recovered/Not Resolved]
  - Dysarthria [Not Recovered/Not Resolved]
  - Medication error [Unknown]
  - Memory impairment [Unknown]
  - Fall [Unknown]
  - Glossodynia [Unknown]
